FAERS Safety Report 12586080 (Version 1)
Quarter: 2016Q3

REPORT INFORMATION
  Report Type: Spontaneous
  Country: US (occurrence: None)
  Receive Date: 20160722
  Receipt Date: 20160722
  Transmission Date: 20161109
  Serious: Yes (Other)
  Sender: FDA-Public Use
  Company Number: None

PATIENT
  Age: 79 Year
  Sex: Female

DRUGS (11)
  1. NATEGLINIDE. [Concomitant]
     Active Substance: NATEGLINIDE
  2. NITROGLYCERIN. [Concomitant]
     Active Substance: NITROGLYCERIN
  3. TRADJENTA [Suspect]
     Active Substance: LINAGLIPTIN
     Indication: DIABETES MELLITUS
     Route: 048
     Dates: start: 20160505, end: 20160515
  4. DOXEPIN [Concomitant]
     Active Substance: DOXEPIN
  5. ALPHA LIPIC [Concomitant]
  6. C [Concomitant]
  7. MAGNESIUM [Concomitant]
     Active Substance: MAGNESIUM
  8. HCL [Concomitant]
  9. VITAMIN B12 [Concomitant]
     Active Substance: CYANOCOBALAMIN
  10. CALCIUM D3 [Concomitant]
     Active Substance: CALCIUM\CHOLECALCIFEROL
  11. SYNTHROID [Concomitant]
     Active Substance: LEVOTHYROXINE SODIUM

REACTIONS (11)
  - Headache [None]
  - Hunger [None]
  - Feeling jittery [None]
  - Nasal congestion [None]
  - Cough [None]
  - Diarrhoea [None]
  - Blood pressure increased [None]
  - Irritability [None]
  - Oropharyngeal pain [None]
  - Heart rate increased [None]
  - Alopecia [None]

NARRATIVE: CASE EVENT DATE: 20160515
